FAERS Safety Report 24395024 (Version 1)
Quarter: 2024Q4

REPORT INFORMATION
  Report Type: Spontaneous
  Country: US (occurrence: US)
  Receive Date: 20241004
  Receipt Date: 20241004
  Transmission Date: 20250114
  Serious: No
  Sender: BIOGEN
  Company Number: US-BIOGEN-2019BI00686571

PATIENT
  Sex: Female

DRUGS (7)
  1. TECFIDERA [Suspect]
     Active Substance: DIMETHYL FUMARATE
     Indication: Multiple sclerosis
     Dosage: STARTING DOSE
     Route: 050
     Dates: start: 2015
  2. TECFIDERA [Suspect]
     Active Substance: DIMETHYL FUMARATE
     Dosage: MAINTENANCE DOSE
     Route: 050
  3. MODAFINIL [Concomitant]
     Active Substance: MODAFINIL
     Route: 050
  4. BACLOFEN [Concomitant]
     Active Substance: BACLOFEN
     Route: 050
  5. COPAXONE [Concomitant]
     Active Substance: GLATIRAMER ACETATE
     Route: 050
  6. REBIF [Concomitant]
     Active Substance: INTERFERON BETA-1A
     Route: 050
  7. SULFAMETHOXAZOLE [Concomitant]
     Active Substance: SULFAMETHOXAZOLE
     Route: 050

REACTIONS (5)
  - Vitamin D decreased [Unknown]
  - Abdominal discomfort [Unknown]
  - Flushing [Unknown]
  - Lymphocyte count decreased [Unknown]
  - Nausea [Unknown]
